FAERS Safety Report 6686182-X (Version None)
Quarter: 2010Q2

REPORT INFORMATION
  Report Type: 
  Country: None (occurrence: None)
  Receive Date: 20100419
  Receipt Date: 20100413
  Transmission Date: 20101027
  Serious: Yes (Death)
  Sender: FDA-Public Use
  Company Number: PHHY2010US23813

PATIENT
  Sex: Male

DRUGS (4)
  1. GLEEVEC [Suspect]
     Dosage: 600 MG/DAY
     Route: 048
     Dates: start: 20010615
  2. BENICAR [Concomitant]
  3. ALLOPURINOL [Concomitant]
  4. AMLODIPINE [Concomitant]

REACTIONS (1)
  - DEATH [None]
